FAERS Safety Report 4560754-0 (Version None)
Quarter: 2005Q1

REPORT INFORMATION
  Report Type: 
  Country: None (occurrence: None)
  Receive Date: 20050124
  Receipt Date: 20050118
  Transmission Date: 20050727
  Serious: Yes (Hospitalization)
  Sender: FDA-Public Use
  Company Number: GBWYE350118JAN05

PATIENT
  Age: 62 Year
  Sex: Female

DRUGS (4)
  1. EFFEXOR [Suspect]
     Dosage: SEE IMAGE
  2. BENDROFLUAZIDE (BENDROFLUMETHIAZIDE) [Concomitant]
  3. SIMVASTATIN [Concomitant]
  4. TOLTERODINE (TOLTERODINE) [Concomitant]

REACTIONS (1)
  - HAEMORRHAGIC STROKE [None]
